FAERS Safety Report 6295133-1 (Version None)
Quarter: 2009Q3

REPORT INFORMATION
  Report Type: 
  Country: None (occurrence: None)
  Receive Date: 20090731
  Receipt Date: 20090731
  Transmission Date: 20100115
  Serious: Yes (Other)
  Sender: FDA-Public Use
  Company Number: None

PATIENT

DRUGS (1)
  1. ARMOUR THYROID 60MG FOREST PHARMACEUTICALS [Suspect]
     Indication: HYPOTHYROIDISM
     Dosage: 1 TABLET ONCE A DAY PO
     Route: 048
     Dates: start: 20090624, end: 20090730

REACTIONS (4)
  - ARTHRALGIA [None]
  - DRUG INEFFECTIVE [None]
  - HYPOTHYROIDISM [None]
  - PRODUCT FORMULATION ISSUE [None]
